FAERS Safety Report 13739852 (Version 4)
Quarter: 2017Q3

REPORT INFORMATION
  Report Type: Spontaneous
  Country: FR (occurrence: FR)
  Receive Date: 20170711
  Receipt Date: 20170816
  Transmission Date: 20171127
  Serious: Yes (Other)
  Sender: FDA-Public Use
  Company Number: FR-LPDUSPRD-20170917

PATIENT
  Age: 26 Year
  Sex: Female
  Weight: 57 kg

DRUGS (4)
  1. FERINJECT [Suspect]
     Active Substance: FERRIC CARBOXYMALTOSE
     Dosage: 1 GM
     Route: 041
     Dates: start: 2015, end: 201604
  2. ASCORBIC ACID. [Concomitant]
     Active Substance: ASCORBIC ACID
     Dosage: UNKNOWN
     Route: 065
  3. IMUREL [Concomitant]
     Active Substance: AZATHIOPRINE SODIUM
     Dosage: UNKNOWN
     Route: 065
     Dates: start: 201302, end: 201501
  4. VENOFER [Suspect]
     Active Substance: IRON SUCROSE
     Dosage: UNKNOWN
     Route: 041

REACTIONS (8)
  - Urine phosphorus increased [Unknown]
  - Renal colic [Unknown]
  - Hepatomegaly [Unknown]
  - Vitamin B12 deficiency [Unknown]
  - Hyperphosphaturia [Unknown]
  - Osteomalacia [Unknown]
  - Myalgia [Unknown]
  - Dyspnoea [Unknown]

NARRATIVE: CASE EVENT DATE: 201601
